FAERS Safety Report 9226151 (Version 1)
Quarter: 2013Q2

REPORT INFORMATION
  Report Type: Spontaneous
  Country: US (occurrence: US)
  Receive Date: 20130411
  Receipt Date: 20130411
  Transmission Date: 20140414
  Serious: Yes (Death)
  Sender: FDA-Public Use
  Company Number: CHPA2013US006177

PATIENT
  Age: 54 Year
  Sex: Female

DRUGS (1)
  1. DOAN^S PILLS STRENGTH UNKNOWN [Suspect]
     Indication: BACK PAIN
     Dosage: UNK, UNK
     Route: 048

REACTIONS (2)
  - Breast cancer [Fatal]
  - Breast cancer female [None]
